FAERS Safety Report 6224359-8 (Version None)
Quarter: 2009Q2

REPORT INFORMATION
  Report Type: 
  Country: None (occurrence: None)
  Receive Date: 20090612
  Receipt Date: 20090317
  Transmission Date: 20091009
  Serious: No
  Sender: FDA-Public Use
  Company Number: US-ABBOTT-09P-163-0563100-00

PATIENT
  Sex: Female
  Weight: 52.21 kg

DRUGS (5)
  1. HUMIRA [Suspect]
     Indication: RHEUMATOID ARTHRITIS
     Dates: start: 20081227
  2. OXYCONTIN [Concomitant]
     Indication: PAIN
  3. VICODIN [Concomitant]
     Indication: DRUG USE FOR UNKNOWN INDICATION
  4. DARVOCET [Concomitant]
     Indication: DRUG USE FOR UNKNOWN INDICATION
  5. RELAFEN [Concomitant]
     Indication: DRUG USE FOR UNKNOWN INDICATION

REACTIONS (6)
  - DRUG INEFFECTIVE [None]
  - JOINT SWELLING [None]
  - MYALGIA [None]
  - PAIN [None]
  - SPLENIC CYST [None]
  - WEIGHT DECREASED [None]
